APPROVED DRUG PRODUCT: BUPIVACAINE HYDROCHLORIDE KIT
Active Ingredient: BUPIVACAINE HYDROCHLORIDE
Strength: 0.075%
Dosage Form/Route: INJECTABLE;INJECTION
Application: N019978 | Product #001
Applicant: HOSPIRA INC
Approved: Sep 3, 1992 | RLD: No | RS: No | Type: DISCN